FAERS Safety Report 6551207-9 (Version None)
Quarter: 2010Q1

REPORT INFORMATION
  Report Type: 
  Country: None (occurrence: None)
  Receive Date: 20100121
  Receipt Date: 20100105
  Transmission Date: 20100710
  Serious: Yes (Other)
  Sender: FDA-Public Use
  Company Number: 478697

PATIENT
  Age: 58 Year
  Sex: Female
  Weight: 66 kg

DRUGS (6)
  1. VINCRISTINE [Suspect]
     Indication: NON-HODGKIN'S LYMPHOMA
     Dosage: 1200 MG, 3 WEEKS, INTRAVENOUS
     Route: 042
     Dates: start: 20090806, end: 20091110
  2. CYCLOPHOSPHAMIDE [Suspect]
     Indication: NON-HODGKIN'S LYMPHOMA
     Dosage: 120 MG, 3 WEEK, INTRAVENOUS
     Route: 042
     Dates: start: 20090806, end: 20091110
  3. (MABTHERA) [Suspect]
     Indication: NON-HODGKIN'S LYMPHOMA
     Dosage: 630 MG, 3 WEEK, INTRAVENOUS
     Route: 042
     Dates: start: 20090806, end: 20091110
  4. (PARACETAMOL) [Concomitant]
  5. DRISTAN [Concomitant]
  6. PREDNISOLONE [Concomitant]

REACTIONS (4)
  - CHEST PAIN [None]
  - DYSPNOEA [None]
  - FLUSHING [None]
  - MUSCULAR WEAKNESS [None]
